FAERS Safety Report 8825884 (Version 1)
Quarter: 2012Q4

REPORT INFORMATION
  Report Type: 
  Country: US (occurrence: US)
  Receive Date: 20121005
  Receipt Date: 20121005
  Transmission Date: 20130627
  Serious: Yes (Other)
  Sender: FDA-Public Use
  Company Number: US-BAYER-2012-100163

PATIENT
  Age: 41 Year
  Sex: Female

DRUGS (3)
  1. ACETYLSALICYLIC ACID({=100 MG) [Suspect]
     Indication: CARDIOVASCULAR EVENT PROPHYLAXIS
     Dosage: given as a bridge to warfarin
  2. ENOXAPARIN [Suspect]
     Indication: CARDIOVASCULAR EVENT PROPHYLAXIS
     Dosage: given as a bridge to warfarin
  3. ENOXAPARIN [Suspect]
     Indication: ANTICOAGULANT THERAPY

REACTIONS (2)
  - Haematochezia [Unknown]
  - Haemodynamic instability [Unknown]
